FAERS Safety Report 10155631 (Version 1)
Quarter: 2014Q2

REPORT INFORMATION
  Report Type: Spontaneous
  Country: US (occurrence: US)
  Receive Date: 20140506
  Receipt Date: 20140506
  Transmission Date: 20141212
  Serious: Yes (Hospitalization)
  Sender: FDA-Public Use
  Company Number: US-INCYTE CORPORATION-2014IN001177

PATIENT
  Age: 72 Year
  Sex: Male

DRUGS (1)
  1. JAKAFI [Suspect]
     Indication: MYELOFIBROSIS
     Dosage: 20 MG, BID
     Route: 048
     Dates: start: 20140301, end: 20140401

REACTIONS (3)
  - Pneumonia [Unknown]
  - Red blood cell count decreased [Unknown]
  - Platelet count decreased [Unknown]
